FAERS Safety Report 6649438-2 (Version None)
Quarter: 2010Q1

REPORT INFORMATION
  Report Type: 
  Country: None (occurrence: None)
  Receive Date: 20100322
  Receipt Date: 20100309
  Transmission Date: 20100710
  Serious: Yes (Other)
  Sender: FDA-Public Use
  Company Number: 232456J01USA

PATIENT
  Age: 55 Year
  Sex: Female

DRUGS (8)
  1. REBIF [Suspect]
     Indication: MULTIPLE SCLEROSIS
     Dosage: 44 MCG, 3 IN 1 WEEKS, SUBCUTANEOUS
     Route: 058
     Dates: start: 20070202, end: 20091001
  2. SYNTHROID [Concomitant]
  3. PREMARIN [Concomitant]
  4. PREVACID [Concomitant]
  5. CARDIZEM [Concomitant]
  6. TOPROL-XL [Concomitant]
  7. BENICAR (OMESARTAN MEDOXOMIL) [Concomitant]
  8. ASPIRIN (ACETYLSAICYLIC ACID) [Concomitant]

REACTIONS (1)
  - AUTOIMMUNE HEPATITIS [None]
